FAERS Safety Report 7559227-2 (Version None)
Quarter: 2011Q2

REPORT INFORMATION
  Report Type: 
  Country: None (occurrence: None)
  Receive Date: 20110621
  Receipt Date: 20110614
  Transmission Date: 20111010
  Serious: Yes (Life-Threatening, Hospitalization)
  Sender: FDA-Public Use
  Company Number: DE-AMGEN-DEUSP2011030784

PATIENT
  Age: 40 Year
  Sex: Female
  Weight: 96 kg

DRUGS (2)
  1. ENBREL [Suspect]
     Indication: ANKYLOSING SPONDYLITIS
     Dosage: 50 MG, WEEKLY
     Route: 058
     Dates: start: 20081001, end: 20100801
  2. CONTRACEPTIVES [Concomitant]
     Dosage: UNK

REACTIONS (1)
  - BREAST CANCER FEMALE [None]
